FAERS Safety Report 16926895 (Version 1)
Quarter: 2019Q4

REPORT INFORMATION
  Report Type: Spontaneous
  Country: GB (occurrence: GB)
  Receive Date: 20191016
  Receipt Date: 20191016
  Transmission Date: 20200122
  Serious: Yes (Death)
  Sender: FDA-Public Use
  Company Number: GB-MYLANLABS-2019M1096947

PATIENT
  Age: 85 Year
  Sex: Female

DRUGS (1)
  1. WARFARIN [Suspect]
     Active Substance: WARFARIN
     Indication: ATRIAL FIBRILLATION
     Dosage: UNK, 5MG FOR 5 DAYS  6MG FOR 2 DAYS
     Route: 048
     Dates: start: 2009, end: 20190711

REACTIONS (1)
  - Subdural haemorrhage [Fatal]

NARRATIVE: CASE EVENT DATE: 20190711
